FAERS Safety Report 14193308 (Version 4)
Quarter: 2017Q4

REPORT INFORMATION
  Report Type: Spontaneous
  Country: GB (occurrence: GB)
  Receive Date: 20171116
  Receipt Date: 20171120
  Transmission Date: 20180321
  Serious: Yes (Other)
  Sender: FDA-Public Use
  Company Number: GB-CONCORDIA PHARMACEUTICALS INC.-GSH201603-001542

PATIENT
  Age: 39 Year
  Sex: Female
  Weight: 47.62 kg

DRUGS (7)
  1. ACTAVIS UK FLUOXETINE [Concomitant]
  2. BOOTS PARACETAMOL AND CODEINE [Concomitant]
  3. PREDNISOLONE. [Suspect]
     Active Substance: PREDNISOLONE
     Indication: CROHN^S DISEASE
     Route: 048
     Dates: start: 20160217
  4. ACTAVIS UK DIAZEPAM [Concomitant]
     Active Substance: DIAZEPAM
  5. BOOTS PARACETAMOL [Concomitant]
  6. ANTIHISTAMINES [Concomitant]
     Active Substance: ANTIHISTAMINES NOS
  7. TRANEXAMIC ACID. [Concomitant]
     Active Substance: TRANEXAMIC ACID

REACTIONS (2)
  - Breast atrophy [Not Recovered/Not Resolved]
  - Hormone level abnormal [Unknown]

NARRATIVE: CASE EVENT DATE: 20160221
